FAERS Safety Report 4323503-7 (Version None)
Quarter: 2004Q1

REPORT INFORMATION
  Report Type: 
  Country: None (occurrence: None)
  Receive Date: 20040325
  Receipt Date: 20040316
  Transmission Date: 20041129
  Serious: Yes (Hospitalization)
  Sender: FDA-Public Use
  Company Number: PHRM2004FR01253

PATIENT
  Age: 84 Year
  Sex: Male

DRUGS (4)
  1. NITRIDERM TTS [Suspect]
     Route: 062
  2. HEXALYSE [Suspect]
     Route: 048
     Dates: start: 20000207, end: 20000212
  3. OCTOFENE [Suspect]
     Route: 054
     Dates: start: 20000207, end: 20000212
  4. ISOPTIN SR [Suspect]
     Route: 048
     Dates: start: 20000225, end: 20000306

REACTIONS (1)
  - PURPURA [None]
